FAERS Safety Report 6533639-8 (Version None)
Quarter: 2010Q1

REPORT INFORMATION
  Report Type: 
  Country: None (occurrence: None)
  Receive Date: 20100111
  Receipt Date: 20091228
  Transmission Date: 20100710
  Serious: Yes (Hospitalization)
  Sender: FDA-Public Use
  Company Number: US-ROCHE-678015

PATIENT
  Age: 53 Year
  Sex: Male
  Weight: 66.4 kg

DRUGS (2)
  1. BEVACIZUMAB [Suspect]
     Dosage: DRUG FORM: INFUSION, LAST DOSE DATE: 03 DECEMBER 2009
     Route: 042
     Dates: start: 20090921
  2. BAY 43-9006 [Suspect]
     Dosage: LAST DOSE DATE: 01 DEC 2009,
     Route: 065
     Dates: start: 20090921

REACTIONS (1)
  - JAUNDICE CHOLESTATIC [None]
